FAERS Safety Report 21269361 (Version 2)
Quarter: 2022Q3

REPORT INFORMATION
  Report Type: Other
  Country: CN (occurrence: CN)
  Receive Date: 20220830
  Receipt Date: 20220909
  Transmission Date: 20221027
  Serious: Yes (Death)
  Sender: FDA-Public Use
  Company Number: CN-GE HEALTHCARE-2022CSU005933

PATIENT
  Age: 73 Year
  Sex: Female

DRUGS (2)
  1. OMNIPAQUE [Suspect]
     Active Substance: IOHEXOL
     Indication: Angiogram
     Dosage: 120 ML, SINGLE
     Route: 042
     Dates: start: 20220821, end: 20220821
  2. OMNIPAQUE [Suspect]
     Active Substance: IOHEXOL
     Indication: Peripheral arterial occlusive disease

REACTIONS (5)
  - Cerebrovascular accident [Fatal]
  - Acute coronary syndrome [Fatal]
  - Urinary incontinence [Fatal]
  - Coma [Fatal]
  - Anaphylactic shock [Fatal]

NARRATIVE: CASE EVENT DATE: 20220821
